FAERS Safety Report 7265579-3 (Version None)
Quarter: 2011Q1

REPORT INFORMATION
  Report Type: 
  Country: None (occurrence: None)
  Receive Date: 20110131
  Receipt Date: 20110128
  Transmission Date: 20110831
  Serious: Yes (Hospitalization)
  Sender: FDA-Public Use
  Company Number: CO-ROCHE-756014

PATIENT
  Sex: Female

DRUGS (4)
  1. DEFLAZACORT [Concomitant]
     Indication: SYSTEMIC LUPUS ERYTHEMATOSUS
     Dosage: QD
     Route: 048
  2. TRAMADOL HCL [Concomitant]
     Indication: PAIN
     Dosage: DOSE: DROPS, FREQUENCY: PRN
     Route: 048
  3. HYDROCHLOROTHIAZIDE [Concomitant]
     Route: 048
  4. CELLCEPT [Suspect]
     Indication: SYSTEMIC LUPUS ERYTHEMATOSUS
     Route: 048
     Dates: start: 20090930

REACTIONS (1)
  - ABDOMINAL MASS [None]
